FAERS Safety Report 7450757-0 (Version None)
Quarter: 2011Q2

REPORT INFORMATION
  Report Type: 
  Country: None (occurrence: None)
  Receive Date: 20110422
  Receipt Date: 20110412
  Transmission Date: 20111010
  Serious: Yes (Hospitalization)
  Sender: FDA-Public Use
  Company Number: 028593

PATIENT
  Sex: Female
  Weight: 48 kg

DRUGS (7)
  1. CIMZIA [Suspect]
  2. FERROUS SULPHATE /00023503/ [Concomitant]
  3. VITAMIN D [Concomitant]
  4. PREDNISONE [Concomitant]
  5. CIMZIA [Suspect]
     Indication: CROHN'S DISEASE
     Dosage: (400 MG 1X/2 WEEKS SUBCUTANEOUS), (400 MG 1X/4 WEEKS SUBCUTANEOUS)
     Route: 058
     Dates: start: 20100726
  6. CIMZIA [Suspect]
     Indication: CROHN'S DISEASE
     Dosage: (400 MG 1X/2 WEEKS SUBCUTANEOUS), (400 MG 1X/4 WEEKS SUBCUTANEOUS)
     Route: 058
     Dates: start: 20100531, end: 20100628
  7. CALCIUM [Concomitant]

REACTIONS (4)
  - WEIGHT DECREASED [None]
  - ARTHRALGIA [None]
  - JOINT SWELLING [None]
  - SYNOVIAL CYST [None]
